FAERS Safety Report 4828989-7 (Version None)
Quarter: 2005Q4

REPORT INFORMATION
  Report Type: 
  Country: None (occurrence: None)
  Receive Date: 20051027
  Receipt Date: 20041230
  Transmission Date: 20060501
  Serious: Yes (Other)
  Sender: FDA-Public Use
  Company Number: HQWYE218117JUL04

PATIENT
  Age: 60 Year
  Sex: Female
  Weight: 104.42 kg

DRUGS (4)
  1. PREMARIN [Suspect]
     Indication: HORMONE REPLACEMENT THERAPY
     Dosage: ORAL
     Route: 048
     Dates: start: 19800101, end: 20030101
  2. NORVASC [Concomitant]
  3. LASIX [Concomitant]
  4. UNSPECIFIED INSULIN (UNSPECIFIED INSULIN) [Concomitant]

REACTIONS (6)
  - BREAST CANCER [None]
  - DEPRESSION [None]
  - HYPOAESTHESIA [None]
  - MEMORY IMPAIRMENT [None]
  - MENTAL IMPAIRMENT [None]
  - SWELLING [None]
